FAERS Safety Report 4942949-7 (Version None)
Quarter: 2006Q1

REPORT INFORMATION
  Report Type: 
  Country: None (occurrence: None)
  Receive Date: 20060309
  Receipt Date: 20060221
  Transmission Date: 20060701
  Serious: Yes (Hospitalization)
  Sender: FDA-Public Use
  Company Number: 2006-BP-02131RO

PATIENT
  Age: 51 Year
  Sex: Female

DRUGS (1)
  1. PREDNISONE TAB [Suspect]
     Indication: THROMBOCYTOPENIA
     Dosage: PO
     Route: 048

REACTIONS (10)
  - CONTUSION [None]
  - HAEMATOCRIT DECREASED [None]
  - HAEMOGLOBIN DECREASED [None]
  - LYMPHANGITIS [None]
  - MALAISE [None]
  - NOCARDIOSIS [None]
  - NODULE [None]
  - PURULENT DISCHARGE [None]
  - SKIN LESION [None]
  - SKIN ULCER [None]
